FAERS Safety Report 4692922-1 (Version None)
Quarter: 2005Q2

REPORT INFORMATION
  Report Type: 
  Country: None (occurrence: None)
  Receive Date: 20050615
  Receipt Date: 20050531
  Transmission Date: 20051028
  Serious: Yes (Hospitalization)
  Sender: FDA-Public Use
  Company Number: 2005-0008382

PATIENT
  Age: 43 Year
  Sex: Male
  Weight: 69 kg

DRUGS (7)
  1. ADEFOVIR DIPIVOXIL (ADEFOVIR DIPIVOXIL) [Suspect]
     Indication: HEPATITIS B
     Dosage: 5 MG, 1 IN 1 D, ORAL
     Route: 048
     Dates: start: 20041216
  2. CYCLOSPORINE [Concomitant]
  3. METHYLPREDNISOLONE [Concomitant]
  4. LOCOL (FLUVASTATIN SODIUM) [Concomitant]
  5. CLONIDINE [Concomitant]
  6. ROCALTROL [Concomitant]
  7. XANAX [Concomitant]

REACTIONS (11)
  - CHOLECYSTITIS [None]
  - CONDITION AGGRAVATED [None]
  - DIVERTICULAR PERFORATION [None]
  - DYSPNOEA [None]
  - HEPATITIS B [None]
  - HYPERTENSION [None]
  - INTESTINAL STOMA COMPLICATION [None]
  - OEDEMA [None]
  - OEDEMA PERIPHERAL [None]
  - SMALL INTESTINAL PERFORATION [None]
  - WOUND DEHISCENCE [None]
